FAERS Safety Report 8998944 (Version 1)
Quarter: 2013Q1

REPORT INFORMATION
  Report Type: Spontaneous
  Country: US (occurrence: US)
  Receive Date: 20130103
  Receipt Date: 20130103
  Transmission Date: 20140127
  Serious: No
  Sender: FDA-Public Use
  Company Number: US-PFIZER INC-2012331780

PATIENT
  Age: 29 Year
  Sex: Male
  Weight: 77.1 kg

DRUGS (2)
  1. ADVIL [Suspect]
     Indication: PAIN
     Dosage: UNK, AS NEEDED
  2. ADVIL [Suspect]
     Indication: PYREXIA

REACTIONS (1)
  - Drug ineffective [Unknown]
